FAERS Safety Report 5480048-9 (Version None)
Quarter: 2007Q4

REPORT INFORMATION
  Report Type: 
  Country: None (occurrence: None)
  Receive Date: 20071008
  Receipt Date: 20070926
  Transmission Date: 20080405
  Serious: Yes (Hospitalization)
  Sender: FDA-Public Use
  Company Number: JP-PFIZER INC-2007079514

PATIENT
  Age: 81 Year
  Sex: Male

DRUGS (4)
  1. VFEND [Suspect]
     Indication: ASPERGILLOMA
     Dosage: DAILY DOSE:400MG
     Route: 048
  2. NORVASC [Concomitant]
     Indication: HYPERTENSION
     Dosage: DAILY DOSE:2.5MG
     Route: 048
  3. ALDACTONE [Concomitant]
     Indication: OEDEMA
     Dosage: DAILY DOSE:50MG
  4. CANDESARTAN CILEXETIL [Concomitant]
     Dosage: DAILY DOSE:4MG

REACTIONS (1)
  - BLOOD CREATINE PHOSPHOKINASE INCREASED [None]
